FAERS Safety Report 10258472 (Version 1)
Quarter: 2014Q2

REPORT INFORMATION
  Report Type: Spontaneous
  Country: US (occurrence: None)
  Receive Date: 20140624
  Receipt Date: 20140624
  Transmission Date: 20141212
  Serious: No
  Sender: FDA-Public Use
  Company Number: None

PATIENT
  Age: 47 Year
  Sex: Male

DRUGS (2)
  1. OLYSIO [Suspect]
     Route: 048
     Dates: start: 20140602
  2. SOVALDI [Suspect]
     Route: 048

REACTIONS (2)
  - Oedema peripheral [None]
  - Face oedema [None]
